FAERS Safety Report 9558729 (Version 1)
Quarter: 2013Q3

REPORT INFORMATION
  Report Type: Spontaneous
  Country: US (occurrence: US)
  Receive Date: 20130926
  Receipt Date: 20130926
  Transmission Date: 20140515
  Serious: No
  Sender: FDA-Public Use
  Company Number: US-BIOGENIDEC-2013BI046526

PATIENT
  Age: 31 Year
  Sex: Female

DRUGS (4)
  1. TECFIDERA [Suspect]
     Indication: MULTIPLE SCLEROSIS
     Route: 048
     Dates: start: 20130507, end: 20130514
  2. TECFIDERA [Suspect]
     Indication: MULTIPLE SCLEROSIS
     Route: 048
     Dates: start: 20130515, end: 20130517
  3. BIRTH CONTROL [Concomitant]
  4. LEVOTHYROXINE [Concomitant]

REACTIONS (3)
  - Pruritus generalised [Not Recovered/Not Resolved]
  - Paraesthesia [Recovered/Resolved]
  - Hot flush [Not Recovered/Not Resolved]
